FAERS Safety Report 6785147-7 (Version None)
Quarter: 2010Q2

REPORT INFORMATION
  Report Type: 
  Country: None (occurrence: None)
  Receive Date: 20100618
  Receipt Date: 20100610
  Transmission Date: 20101027
  Serious: Yes (Other)
  Sender: FDA-Public Use
  Company Number: 2010-00480

PATIENT
  Age: 70 Year
  Sex: Male
  Weight: 102 kg

DRUGS (7)
  1. SIMVASTATIN [Suspect]
     Indication: HYPERCHOLESTEROLAEMIA
     Dosage: 40 MG, ORAL
     Route: 048
     Dates: start: 20090528, end: 20100121
  2. ATORVASTATIN [Suspect]
     Indication: HYPERCHOLESTEROLAEMIA
     Dosage: 40 MG, ORAL; 40 MG, ORAL
     Route: 048
     Dates: start: 20090528, end: 20100121
  3. ATORVASTATIN [Suspect]
     Indication: HYPERCHOLESTEROLAEMIA
     Dosage: 40 MG, ORAL; 40 MG, ORAL
     Route: 048
     Dates: start: 20090128, end: 20100310
  4. ASPIRIN [Concomitant]
  5. BISOPROLOL [Concomitant]
  6. CLOPIDOGREL [Concomitant]
  7. RAMIPRIL [Concomitant]

REACTIONS (1)
  - RECTAL HAEMORRHAGE [None]
